FAERS Safety Report 10098400 (Version 3)
Quarter: 2014Q2

REPORT INFORMATION
  Report Type: Report from Study
  Country: US (occurrence: US)
  Receive Date: 20140423
  Receipt Date: 20140613
  Transmission Date: 20141212
  Serious: Yes (Hospitalization)
  Sender: FDA-Public Use
  Company Number: PHHO2014US005680

PATIENT
  Age: 27 Year
  Sex: Female
  Weight: 56 kg

DRUGS (10)
  1. STI571 [Suspect]
     Indication: MULTIPLE SCLEROSIS
     Dosage: 100 MG, BID
     Route: 048
     Dates: start: 20140409, end: 20140413
  2. DECADRON [Concomitant]
     Dosage: UNK
     Route: 048
     Dates: start: 201312
  3. LOESTRIN-FE [Concomitant]
     Dosage: UNK
  4. PREDNISONE [Concomitant]
     Dosage: UNK
     Dates: start: 201107
  5. POSACONAZOLE [Concomitant]
     Dosage: UNK
     Dates: start: 201306
  6. VICODIN [Concomitant]
     Dosage: UNK
     Dates: start: 201307
  7. ACYCLOVIR [Concomitant]
     Dosage: UNK
  8. BACTRIM [Concomitant]
     Dosage: UNK
  9. FOSAMAX [Concomitant]
     Dosage: UNK
  10. BACLOFEN [Concomitant]
     Dosage: UNK
     Dates: start: 201403

REACTIONS (1)
  - Coronary artery disease [Recovered/Resolved]
